FAERS Safety Report 8801022 (Version 20)
Quarter: 2019Q3

REPORT INFORMATION
  Report Type: Spontaneous
  Country: CA (occurrence: CA)
  Receive Date: 20120920
  Receipt Date: 20190922
  Transmission Date: 20191005
  Serious: Yes (Other)
  Sender: FDA-Public Use
  Company Number: CA-ROCHE-1126245

PATIENT
  Age: 37 Year
  Sex: Female

DRUGS (19)
  1. XOLAIR [Suspect]
     Active Substance: OMALIZUMAB
     Route: 058
     Dates: start: 20130909
  2. VENTOLIN [Concomitant]
     Active Substance: ALBUTEROL SULFATE
     Dosage: FREQUNCY REDUCED
     Route: 065
  3. EPIPEN [Concomitant]
     Active Substance: EPINEPHRINE
     Indication: ARTHROPOD STING
     Route: 065
  4. XOLAIR [Suspect]
     Active Substance: OMALIZUMAB
     Route: 058
     Dates: start: 20170531
  5. SINGULAIR [Concomitant]
     Active Substance: MONTELUKAST SODIUM
     Indication: PRODUCT USED FOR UNKNOWN INDICATION
     Route: 065
  6. XOLAIR [Suspect]
     Active Substance: OMALIZUMAB
     Indication: ASTHMA
     Route: 058
     Dates: start: 20111026
  7. XOLAIR [Suspect]
     Active Substance: OMALIZUMAB
     Route: 058
     Dates: start: 20190414
  8. SYMBICORT [Concomitant]
     Active Substance: BUDESONIDE\FORMOTEROL FUMARATE DIHYDRATE
     Indication: PRODUCT USED FOR UNKNOWN INDICATION
     Dosage: UNK
     Route: 065
  9. VENTOLIN [Concomitant]
     Active Substance: ALBUTEROL SULFATE
     Dosage: UNK LESS FREQUENTLY 3 TIMES
     Route: 065
  10. TORADOL [Concomitant]
     Active Substance: KETOROLAC TROMETHAMINE
     Indication: PRODUCT USED FOR UNKNOWN INDICATION
     Route: 065
  11. XOLAIR [Suspect]
     Active Substance: OMALIZUMAB
     Route: 058
     Dates: start: 20130412
  12. XOLAIR [Suspect]
     Active Substance: OMALIZUMAB
     Route: 058
     Dates: start: 20141022
  13. XOLAIR [Suspect]
     Active Substance: OMALIZUMAB
     Route: 058
     Dates: start: 20180509
  14. XOLAIR [Suspect]
     Active Substance: OMALIZUMAB
     Route: 058
     Dates: start: 20130827
  15. XOLAIR [Suspect]
     Active Substance: OMALIZUMAB
     Route: 058
     Dates: start: 20160503
  16. XOLAIR [Suspect]
     Active Substance: OMALIZUMAB
     Dosage: 375MG, BIW
     Route: 058
     Dates: start: 20190828
  17. FLOVENT [Concomitant]
     Active Substance: FLUTICASONE PROPIONATE
     Indication: PRODUCT USED FOR UNKNOWN INDICATION
     Route: 065
  18. SPIRIVA [Concomitant]
     Active Substance: TIOTROPIUM BROMIDE MONOHYDRATE
     Indication: PRODUCT USED FOR UNKNOWN INDICATION
     Route: 065
  19. VENTOLIN [Concomitant]
     Active Substance: ALBUTEROL SULFATE
     Indication: PRODUCT USED FOR UNKNOWN INDICATION
     Dosage: 3-12 TIMES A DAY
     Route: 065

REACTIONS (37)
  - Lung disorder [Unknown]
  - Chest discomfort [Unknown]
  - Cystitis [Unknown]
  - Lower respiratory tract infection [Recovering/Resolving]
  - Asthma [Unknown]
  - Chest pain [Unknown]
  - Confusional state [Unknown]
  - Arthropod bite [Unknown]
  - Contusion [Recovering/Resolving]
  - Lung infection [Unknown]
  - Balance disorder [Unknown]
  - Pain in extremity [Unknown]
  - Muscle strain [Unknown]
  - Stress [Unknown]
  - Tooth abscess [Unknown]
  - Productive cough [Unknown]
  - Paraesthesia [Unknown]
  - Incorrect dose administered [Unknown]
  - Nasal congestion [Unknown]
  - Breast mass [Unknown]
  - Wheezing [Recovered/Resolved]
  - Cough [Unknown]
  - Pleuritic pain [Unknown]
  - Respiratory fume inhalation disorder [Unknown]
  - Irritability [Recovering/Resolving]
  - Fatigue [Unknown]
  - Urinary tract infection [Unknown]
  - Influenza [Unknown]
  - Dyspnoea [Unknown]
  - Injection site pain [Unknown]
  - Rash [Unknown]
  - Weight fluctuation [Unknown]
  - Fibromyalgia [Unknown]
  - Respiratory failure [Unknown]
  - Hypoventilation [Recovering/Resolving]
  - Abnormal sensation in eye [Unknown]
  - Malaise [Unknown]

NARRATIVE: CASE EVENT DATE: 201111
